FAERS Safety Report 7560457-4 (Version None)
Quarter: 2011Q2

REPORT INFORMATION
  Report Type: 
  Country: None (occurrence: None)
  Receive Date: 20110621
  Receipt Date: 20110614
  Transmission Date: 20111010
  Serious: Yes (Other)
  Sender: FDA-Public Use
  Company Number: US-PFIZER INC-2011115595

PATIENT
  Sex: Female
  Weight: 71.2 kg

DRUGS (23)
  1. HYDROCODONE [Suspect]
     Dosage: UNK
  2. TRAMADOL HCL [Suspect]
     Dosage: UNK
  3. SOMA [Suspect]
     Dosage: UNK
  4. METOPROLOL [Concomitant]
     Indication: HYPERTENSION
     Dosage: 50 MG, DAILY
  5. CALCIUM MAGNESIUM ZINC [Concomitant]
     Dosage: UNK
  6. CODEINE [Suspect]
     Dosage: UNK
  7. VALSARTAN [Concomitant]
     Indication: HYPERTENSION
     Dosage: 80 MG, DAILY
  8. EFFEXOR [Suspect]
     Dosage: UNK
  9. ASPIRIN [Concomitant]
     Dosage: 325 MG
  10. NEURONTIN [Suspect]
     Indication: NEUROPATHY PERIPHERAL
     Dosage: UNK
  11. PREDNISONE [Suspect]
     Dosage: UNK
  12. PREVACID [Suspect]
     Dosage: UNK
  13. IMODIUM MULTI-SYMPTOM RELIEF [Concomitant]
     Indication: IRRITABLE BOWEL SYNDROME
     Dosage: 1 OR 2 IN AM
     Route: 048
  14. MELATONIN [Concomitant]
     Dosage: 3 MG
  15. VITAMIN D [Concomitant]
  16. LYRICA [Suspect]
     Indication: FIBROMYALGIA
     Dosage: 50 MG, 1X/DAY
     Route: 048
     Dates: start: 20110527, end: 20110528
  17. AZITHROMYCIN [Suspect]
     Dosage: UNK
  18. LYRICA [Suspect]
     Indication: NEURALGIA
  19. CIPROFLOXACIN [Suspect]
     Dosage: UNK
  20. IPRATROPIUM [Concomitant]
  21. MOTRIN [Suspect]
     Dosage: UNK
  22. TRIAMTERENE AND HYDROCHLOROTHIAZIDE [Concomitant]
     Indication: HYPERTENSION
     Dosage: 75/50 TAB 1/2 DAILY
     Route: 048
  23. RANITIDINE [Concomitant]
     Indication: GASTROOESOPHAGEAL REFLUX DISEASE
     Dosage: 150 MG, 1 OR 2 A DAY
     Dates: start: 20090401

REACTIONS (8)
  - CHEST PAIN [None]
  - ACTIVITIES OF DAILY LIVING IMPAIRED [None]
  - DIZZINESS [None]
  - SOMNOLENCE [None]
  - HYPOTENSION [None]
  - ABDOMINAL PAIN UPPER [None]
  - VISUAL IMPAIRMENT [None]
  - ARTHRALGIA [None]
